FAERS Safety Report 10307187 (Version 2)
Quarter: 2014Q3

REPORT INFORMATION
  Report Type: Spontaneous
  Country: FR (occurrence: FR)
  Receive Date: 20140716
  Receipt Date: 20140801
  Transmission Date: 20150326
  Serious: Yes (Hospitalization)
  Sender: FDA-Public Use
  Company Number: FR-UCBSA-2014005131

PATIENT
  Age: 71 Year
  Sex: Male

DRUGS (11)
  1. TEMODAL [Suspect]
     Active Substance: TEMOZOLOMIDE
     Indication: ASTROCYTOMA
     Dosage: UNK
     Dates: start: 201402, end: 20140416
  2. HYDROCHLOROTHIAZIDE. [Suspect]
     Active Substance: HYDROCHLOROTHIAZIDE
     Dosage: 1 DF, UNK
     Route: 048
     Dates: end: 20140513
  3. KEPPRA [Suspect]
     Active Substance: LEVETIRACETAM
     Indication: EPILEPSY
     Dosage: UNK
     Route: 048
     Dates: start: 2013, end: 20140513
  4. IRBESARTAN. [Suspect]
     Active Substance: IRBESARTAN
     Dosage: 300 MG, ONCE DAILY (QD)
     Route: 048
     Dates: end: 20140602
  5. HYPERIUM [Suspect]
     Active Substance: RILMENIDINE PHOSPHATE
     Dosage: 1 DF, UNK, STRENGTH: 1 MG
     Route: 048
     Dates: end: 20140601
  6. SERESTA [Suspect]
     Active Substance: OXAZEPAM
     Dosage: 0.5 DF, ONCE DAILY (QD)
     Route: 048
     Dates: start: 201304, end: 201406
  7. KYTRIL [Suspect]
     Active Substance: GRANISETRON HYDROCHLORIDE
     Indication: NAUSEA
     Dosage: UNK
     Dates: start: 20140414, end: 20140416
  8. MUPHORAN [Concomitant]
     Active Substance: FOTEMUSTINE
     Indication: CHEMOTHERAPY
     Dosage: UNK
     Dates: start: 20140516, end: 20140516
  9. ZOPHREN [Concomitant]
     Active Substance: ONDANSETRON
     Indication: NAUSEA
     Dosage: UNK
     Dates: start: 20140516, end: 20140516
  10. VIMPAT [Concomitant]
     Active Substance: LACOSAMIDE
     Indication: EPILEPSY
     Dosage: UNK
     Dates: start: 20140518, end: 20140526
  11. URBANYL [Concomitant]
     Active Substance: CLOBAZAM

REACTIONS (8)
  - Pruritus [Unknown]
  - Lung disorder [Recovered/Resolved]
  - Dyspnoea [Unknown]
  - Pyrexia [Unknown]
  - Dermatitis exfoliative [Recovering/Resolving]
  - Tachypnoea [Unknown]
  - Chills [Unknown]
  - Hyperthermia [Unknown]

NARRATIVE: CASE EVENT DATE: 20140416
